FAERS Safety Report 5046284-0 (Version None)
Quarter: 2006Q2

REPORT INFORMATION
  Report Type: 
  Country: None (occurrence: None)
  Receive Date: 20060629
  Receipt Date: 20060615
  Transmission Date: 20061013
  Serious: Yes (Hospitalization, Disabling, Other)
  Sender: FDA-Public Use
  Company Number: 2005113756

PATIENT
  Age: 80 Year
  Sex: Female

DRUGS (7)
  1. BEXTRA [Suspect]
     Indication: ARTHRITIS
  2. LYRICA [Suspect]
     Indication: NEURALGIA
     Dosage: 225 MG (75 MG, TID: EVERY
     Dates: start: 20060101
  3. MICARDIS [Concomitant]
  4. PLAVIX [Concomitant]
  5. HYDROCHLOROTHIAZIDE [Concomitant]
  6. ZOCOR [Concomitant]
  7. COQ-10 ST (TOCOPHEROL, UBIDECARENONE) [Concomitant]

REACTIONS (8)
  - ARTHRITIS [None]
  - CONDITION AGGRAVATED [None]
  - FAECES DISCOLOURED [None]
  - GASTRIC HAEMORRHAGE [None]
  - MYOCARDIAL INFARCTION [None]
  - NEURALGIA [None]
  - POLLAKIURIA [None]
  - POST PROCEDURAL COMPLICATION [None]
